FAERS Safety Report 12543808 (Version 1)
Quarter: 2016Q3

REPORT INFORMATION
  Report Type: Spontaneous
  Country: US (occurrence: US)
  Receive Date: 20160711
  Receipt Date: 20160711
  Transmission Date: 20161109
  Serious: No
  Sender: FDA-Public Use
  Company Number: US-JAZZ-2016-US-000193

PATIENT
  Age: 51 Year
  Sex: Female
  Weight: 70.74 kg

DRUGS (12)
  1. XYREM [Suspect]
     Active Substance: SODIUM OXYBATE
     Dosage: 2 G, BID
     Route: 048
     Dates: start: 2016
  2. ADOXA [Concomitant]
     Active Substance: DOXYCYCLINE
  3. IBUPROFEN. [Concomitant]
     Active Substance: IBUPROFEN
     Indication: PRODUCT USED FOR UNKNOWN INDICATION
     Dosage: UNK, PRN
  4. CABERGOLINE. [Concomitant]
     Active Substance: CABERGOLINE
  5. ANECREAM 5 [Concomitant]
     Active Substance: LIDOCAINE
  6. XYREM [Suspect]
     Active Substance: SODIUM OXYBATE
     Indication: NARCOLEPSY
     Dosage: 2 G, BID
     Route: 048
     Dates: start: 20150101, end: 201601
  7. OMEPRAZOLE. [Concomitant]
     Active Substance: OMEPRAZOLE
  8. XYREM [Suspect]
     Active Substance: SODIUM OXYBATE
     Dosage: 3.75 G, BID
     Route: 048
     Dates: start: 201601, end: 201601
  9. XYREM [Suspect]
     Active Substance: SODIUM OXYBATE
     Dosage: 3 G, BID
     Route: 048
     Dates: start: 201601, end: 201601
  10. ADVIL [Concomitant]
     Active Substance: IBUPROFEN
  11. DOSTINEX [Concomitant]
     Active Substance: CABERGOLINE
     Indication: PITUITARY TUMOUR
     Dosage: UNK, TWICE WEEKLY
  12. XANAX [Concomitant]
     Active Substance: ALPRAZOLAM

REACTIONS (20)
  - Abdominal pain upper [Recovering/Resolving]
  - Dyspnoea [Recovered/Resolved]
  - Pain [Unknown]
  - Unevaluable event [Unknown]
  - Sinusitis [Unknown]
  - Dizziness [Unknown]
  - Muscle twitching [Recovering/Resolving]
  - Alopecia [Unknown]
  - Abnormal dreams [Unknown]
  - Nervousness [Unknown]
  - Pruritus [Recovering/Resolving]
  - Weight increased [Unknown]
  - Hangover [Unknown]
  - Cough [Recovering/Resolving]
  - Condition aggravated [Unknown]
  - Headache [Unknown]
  - Abdominal distension [Unknown]
  - Decreased appetite [Not Recovered/Not Resolved]
  - Muscle spasms [Not Recovered/Not Resolved]
  - Condition aggravated [Not Recovered/Not Resolved]

NARRATIVE: CASE EVENT DATE: 201501
